FAERS Safety Report 10875362 (Version 1)
Quarter: 2015Q1

REPORT INFORMATION
  Report Type: Spontaneous
  Country: US (occurrence: US)
  Receive Date: 20150227
  Receipt Date: 20150227
  Transmission Date: 20150721
  Serious: Yes (Hospitalization, Other)
  Sender: FDA-Public Use
  Company Number: US-B.I. PHARMACEUTICALS,INC./RIDGEFIELD-2015-BI-09193BP

PATIENT
  Age: 42 Year
  Sex: Female

DRUGS (9)
  1. KLONOPIN [Concomitant]
     Active Substance: CLONAZEPAM
     Indication: ANXIETY
     Dosage: 6 MG
     Route: 065
  2. LUNESTA [Concomitant]
     Active Substance: ESZOPICLONE
     Indication: SLEEP DISORDER
     Dosage: 0.3 MG
     Route: 065
  3. ASPIRIN. [Suspect]
     Active Substance: ASPIRIN
     Indication: PRODUCT USED FOR UNKNOWN INDICATION
     Dosage: 81 MG
     Route: 065
     Dates: start: 2014
  4. HUMIRA [Suspect]
     Active Substance: ADALIMUMAB
     Indication: RHEUMATOID ARTHRITIS
     Dosage: 2.8571 MG
     Route: 065
     Dates: start: 2012
  5. AGGRENOX [Suspect]
     Active Substance: ASPIRIN\DIPYRIDAMOLE
     Indication: PRODUCT USED FOR UNKNOWN INDICATION
     Route: 065
     Dates: start: 2014, end: 2014
  6. LATUDA [Suspect]
     Active Substance: LURASIDONE HYDROCHLORIDE
     Indication: PRODUCT USED FOR UNKNOWN INDICATION
     Route: 065
  7. TRILEPTAL [Suspect]
     Active Substance: OXCARBAZEPINE
     Indication: MOOD ALTERED
     Dosage: 300 MG
     Route: 065
     Dates: start: 2014
  8. ZOCOR [Suspect]
     Active Substance: SIMVASTATIN
     Dosage: 40 MG
     Route: 065
     Dates: start: 2014
  9. ZOCOR [Suspect]
     Active Substance: SIMVASTATIN
     Indication: CARDIOVASCULAR EVENT PROPHYLAXIS
     Dosage: 20 MG
     Route: 065
     Dates: start: 2014, end: 2014

REACTIONS (16)
  - Breast cyst [Unknown]
  - Cardiac disorder [Unknown]
  - Incorrect product storage [Unknown]
  - Poor quality drug administered [Unknown]
  - Upper limb fracture [Unknown]
  - Injury [Unknown]
  - Tooth abscess [Unknown]
  - Abdominal pain [Not Recovered/Not Resolved]
  - Road traffic accident [Unknown]
  - Contusion [Unknown]
  - Surgery [Unknown]
  - Abdominal distension [Not Recovered/Not Resolved]
  - Cerebrovascular accident [Unknown]
  - Fall [Unknown]
  - Haemorrhage [Unknown]
  - Back pain [Unknown]

NARRATIVE: CASE EVENT DATE: 2013
